FAERS Safety Report 6366384-2 (Version None)
Quarter: 2009Q3

REPORT INFORMATION
  Report Type: 
  Country: None (occurrence: None)
  Receive Date: 20090915
  Receipt Date: 20090911
  Transmission Date: 20100115
  Serious: Yes (Death)
  Sender: FDA-Public Use
  Company Number: 2009SP019054

PATIENT
  Age: 60 Year
  Sex: Male
  Weight: 64 kg

DRUGS (16)
  1. TEMODAL [Suspect]
     Indication: CHEMOTHERAPY
     Dosage: 140 MG; QD; PO
     Route: 048
     Dates: start: 20090526, end: 20090617
  2. LAKTULOSE [Concomitant]
  3. MORPHINE [Concomitant]
  4. IMOCLONE [Concomitant]
  5. CENTYL MED KALIUMKLORID [Concomitant]
  6. ACETYLSALICYLIC ACID [Concomitant]
  7. PICOLON [Concomitant]
  8. MAGNESIA /00123201/ [Concomitant]
  9. TRIATEC /00116401/ [Concomitant]
  10. PANTOLOC /01263201/ [Concomitant]
  11. ONDANSETRON [Concomitant]
  12. CALCIUM [Concomitant]
  13. MEDROL [Concomitant]
  14. SPIRON /00006201/ [Concomitant]
  15. LAMICTAL [Concomitant]
  16. SELO-ZOK [Concomitant]

REACTIONS (3)
  - BONE MARROW FAILURE [None]
  - CARDIAC FAILURE [None]
  - SEPSIS [None]
